FAERS Safety Report 8257138-0 (Version None)
Quarter: 2012Q1

REPORT INFORMATION
  Report Type: 
  Country: None (occurrence: None)
  Receive Date: 20120330
  Receipt Date: 20120315
  Transmission Date: 20120608
  Serious: Yes (Hospitalization)
  Sender: FDA-Public Use
  Company Number: DSA_55742_2012

PATIENT
  Age: 52 Year
  Sex: Male

DRUGS (5)
  1. QVAR 40 [Concomitant]
  2. IRBESARTAN [Concomitant]
  3. SITAGLIPTIN PHOSPHATE [Suspect]
     Indication: PRODUCT USED FOR UNKNOWN INDICATION
     Dosage: (100 MG QD ORAL)
     Route: 048
     Dates: start: 20111006, end: 20111101
  4. ENALAPRIL MALEATE [Suspect]
     Indication: PRODUCT USED FOR UNKNOWN INDICATION
     Dosage: (20 MG QD ORAL)
     Route: 048
     Dates: start: 20111006, end: 20111101
  5. METFORMIN HCL [Concomitant]

REACTIONS (1)
  - LEUKOCYTOCLASTIC VASCULITIS [None]
